FAERS Safety Report 6019006-4 (Version None)
Quarter: 2008Q4

REPORT INFORMATION
  Report Type: 
  Country: None (occurrence: None)
  Receive Date: 20081224
  Receipt Date: 20081216
  Transmission Date: 20090506
  Serious: Yes (Other)
  Sender: FDA-Public Use
  Company Number: US-NOVOPROD-282455

PATIENT
  Sex: Male

DRUGS (1)
  1. NOVOSEVEN [Suspect]
     Indication: HAEMARTHROSIS
     Dosage: UNKNOWN

REACTIONS (2)
  - HAEMARTHROSIS [None]
  - INHIBITING ANTIBODIES [None]
